FAERS Safety Report 13626009 (Version 1)
Quarter: 2017Q2

REPORT INFORMATION
  Report Type: Spontaneous
  Country: US (occurrence: US)
  Receive Date: 20170607
  Receipt Date: 20170607
  Transmission Date: 20170830
  Serious: Yes (Other)
  Sender: FDA-Public Use
  Company Number: None

PATIENT
  Age: 32 Year
  Sex: Male
  Weight: 104.8 kg

DRUGS (6)
  1. LIPITOR [Concomitant]
     Active Substance: ATORVASTATIN CALCIUM
  2. LEXAPRO [Concomitant]
     Active Substance: ESCITALOPRAM OXALATE
  3. LEVOCETERIZINE [Concomitant]
  4. MULTIVITAMINS [Concomitant]
     Active Substance: VITAMINS
  5. MONTELUKAST SOD 10MG TABLET [Suspect]
     Active Substance: MONTELUKAST SODIUM
     Indication: MULTIPLE ALLERGIES
     Dosage: ?          QUANTITY:30 TABLET(S);?
     Route: 048
     Dates: start: 20170601, end: 20170605
  6. DEXILANT [Concomitant]
     Active Substance: DEXLANSOPRAZOLE

REACTIONS (3)
  - Blood glucose increased [None]
  - Product substitution issue [None]
  - Psychotic symptom [None]

NARRATIVE: CASE EVENT DATE: 20170606
